FAERS Safety Report 8471619-6 (Version None)
Quarter: 2012Q2

REPORT INFORMATION
  Report Type: 
  Country: None (occurrence: None)
  Receive Date: 20120323
  Receipt Date: 20110928
  Transmission Date: 20120825
  Serious: Yes (Other)
  Sender: FDA-Public Use
  Company Number: 163-21880-11100212

PATIENT
  Age: 62 Year
  Sex: Male

DRUGS (10)
  1. CALCIUM CARBONATE [Concomitant]
  2. TENORMIN [Concomitant]
  3. ZESTRIL [Concomitant]
  4. ZOLOFT [Concomitant]
  5. REVLIMID [Suspect]
     Indication: MULTIPLE MYELOMA
     Dosage: 25 MG, 1 IN 1 D, PO, 15 MG, QD X 3 WEEKS, PO
     Route: 048
     Dates: start: 20110701
  6. REVLIMID [Suspect]
     Indication: MULTIPLE MYELOMA
     Dosage: 25 MG, 1 IN 1 D, PO, 15 MG, QD X 3 WEEKS, PO
     Route: 048
     Dates: start: 20110801
  7. GABAPENTIN [Concomitant]
  8. PLENDIL [Concomitant]
  9. MORPHINE [Concomitant]
  10. PRILOSEC [Concomitant]

REACTIONS (1)
  - PULMONARY THROMBOSIS [None]
